FAERS Safety Report 6299148-9 (Version None)
Quarter: 2009Q3

REPORT INFORMATION
  Report Type: 
  Country: None (occurrence: None)
  Receive Date: 20090804
  Receipt Date: 20090724
  Transmission Date: 20100115
  Serious: Yes (Hospitalization)
  Sender: FDA-Public Use
  Company Number: GXKR2009NL08581

PATIENT
  Age: 84 Year
  Sex: Female
  Weight: 68 kg

DRUGS (8)
  1. SULFAMETHOXAZOLE AND TRIMETHOPRIM [Suspect]
     Dosage: 1 DF, BID, ORAL
     Route: 048
     Dates: start: 20090713, end: 20090715
  2. GLIMEPIRIDE                  (GLIMEPIRIDE) TABLET, 1MG [Suspect]
     Indication: TYPE 2 DIABETES MELLITUS
     Dosage: 1 DF, QD, ORAL
     Route: 048
     Dates: start: 20070113, end: 20090715
  3. METFORMINE HYDROCHLORIDE [Suspect]
     Indication: TYPE 2 DIABETES MELLITUS
     Dosage: 1 DF, QD, ORAL
     Route: 048
     Dates: start: 20070113
  4. OXAZEPAM [Concomitant]
  5. SEROQUEL [Concomitant]
  6. LITHIUM CARBONATE [Concomitant]
  7. NIFEDIPINE [Concomitant]
  8. ZOPICLON (ZOPICLONE) [Concomitant]

REACTIONS (2)
  - DRUG INTERACTION [None]
  - HYPOGLYCAEMIA [None]
